FAERS Safety Report 9039550 (Version 1)
Quarter: 2013Q1

REPORT INFORMATION
  Report Type: Report from Study
  Country: US (occurrence: US)
  Receive Date: 20130129
  Receipt Date: 20130129
  Transmission Date: 20140127
  Serious: No
  Sender: FDA-Public Use
  Company Number: US-ABBOTT-12P-163-0940168-00

PATIENT
  Sex: Female

DRUGS (4)
  1. HUMIRA 40 MG/0.8 ML PEN [Suspect]
     Indication: PSORIATIC ARTHROPATHY
     Dates: start: 200911, end: 201110
  2. LISINOPRIL [Concomitant]
     Indication: HYPERTENSION
  3. CITALOPRAM [Concomitant]
     Indication: PRODUCT USED FOR UNKNOWN INDICATION
  4. UNKNOWN ANTIBIOTICS [Concomitant]
     Indication: BRONCHITIS

REACTIONS (2)
  - Bronchitis [Recovered/Resolved]
  - Bronchitis [Recovered/Resolved]
